FAERS Safety Report 10810486 (Version 1)
Quarter: 2015Q1

REPORT INFORMATION
  Report Type: Spontaneous
  Country: US (occurrence: None)
  Receive Date: 20150212
  Receipt Date: 20150212
  Transmission Date: 20150721
  Serious: Yes (Hospitalization)
  Sender: FDA-Public Use
  Company Number: None

PATIENT
  Age: 55 Year
  Sex: Male
  Weight: 81.65 kg

DRUGS (8)
  1. LEXAPRO [Concomitant]
     Active Substance: ESCITALOPRAM OXALATE
  2. SAPHRIS [Suspect]
     Active Substance: ASENAPINE MALEATE
     Indication: ANXIETY
     Dosage: 1 PILL AT BEDTIME TAKEN UNDER THE TONGUE
     Route: 048
  3. LIPITOR [Concomitant]
     Active Substance: ATORVASTATIN CALCIUM
  4. FISH OIL [Concomitant]
     Active Substance: FISH OIL
  5. SAPHRIS [Suspect]
     Active Substance: ASENAPINE MALEATE
     Indication: OFF LABEL USE
     Dosage: 1 PILL AT BEDTIME TAKEN UNDER THE TONGUE
     Route: 048
  6. SAPHRIS [Suspect]
     Active Substance: ASENAPINE MALEATE
     Indication: DEPRESSION
     Dosage: 1 PILL AT BEDTIME TAKEN UNDER THE TONGUE
     Route: 048
  7. KLONOPIN [Concomitant]
     Active Substance: CLONAZEPAM
  8. VITAMIN D [Concomitant]
     Active Substance: CHOLECALCIFEROL

REACTIONS (3)
  - Loss of consciousness [None]
  - Hypotension [None]
  - Off label use [None]

NARRATIVE: CASE EVENT DATE: 20130802
